FAERS Safety Report 23204539 (Version 3)
Quarter: 2023Q4

REPORT INFORMATION
  Report Type: Spontaneous
  Country: US (occurrence: US)
  Receive Date: 20231120
  Receipt Date: 20231221
  Transmission Date: 20240110
  Serious: No
  Sender: FDA-Public Use
  Company Number: US-002147023-NVSC2023US246680

PATIENT
  Age: 51 Year
  Sex: Female
  Weight: 102 kg

DRUGS (1)
  1. LEQVIO [Suspect]
     Active Substance: INCLISIRAN SODIUM
     Indication: Hyperlipidaemia
     Dosage: 284 MG, Q3MO (FOR 6 MONTHS)
     Route: 058
     Dates: start: 20231103, end: 20231103

REACTIONS (7)
  - Brain fog [Recovering/Resolving]
  - Muscle spasms [Unknown]
  - Restless legs syndrome [Recovering/Resolving]
  - Nausea [Recovered/Resolved]
  - Pain [Unknown]
  - Insomnia [Recovering/Resolving]
  - Constipation [Unknown]

NARRATIVE: CASE EVENT DATE: 20231103
